FAERS Safety Report 22900698 (Version 2)
Quarter: 2023Q4

REPORT INFORMATION
  Report Type: Spontaneous
  Country: AU (occurrence: AU)
  Receive Date: 20230904
  Receipt Date: 20231019
  Transmission Date: 20240110
  Serious: Yes (Hospitalization, Other)
  Sender: FDA-Public Use
  Company Number: AU-GLAXOSMITHKLINE-AU2023APC078603

PATIENT
  Age: 25 Year
  Sex: Female

DRUGS (11)
  1. CARIPRAZINE [Suspect]
     Active Substance: CARIPRAZINE
     Indication: Bipolar II disorder
     Dosage: UNK
     Route: 048
  2. LITHIUM [Suspect]
     Active Substance: LITHIUM
     Indication: Bipolar II disorder
     Dosage: UNK
     Route: 065
  3. VALPROATE [Suspect]
     Active Substance: VALPROIC ACID
     Indication: Bipolar II disorder
     Dosage: UNK
     Route: 065
  4. BUPROPION [Suspect]
     Active Substance: BUPROPION
     Indication: Bipolar II disorder
     Route: 065
  5. OLANZAPINE [Suspect]
     Active Substance: OLANZAPINE
     Indication: Bipolar II disorder
     Dosage: UNK
     Route: 065
  6. LAMICTAL [Suspect]
     Active Substance: LAMOTRIGINE
     Indication: Bipolar II disorder
     Dosage: UNK
     Route: 065
  7. SEROQUEL [Suspect]
     Active Substance: QUETIAPINE FUMARATE
     Indication: Bipolar II disorder
     Dosage: UNK
     Route: 065
  8. SPRAVATO [Suspect]
     Active Substance: ESKETAMINE
     Indication: Bipolar II disorder
     Dosage: UNK
     Route: 065
  9. ESKETAMINE [Suspect]
     Active Substance: ESKETAMINE
     Indication: Bipolar II disorder
     Dosage: UNK
     Route: 065
  10. LATUDA [Suspect]
     Active Substance: LURASIDONE HYDROCHLORIDE
     Indication: Bipolar II disorder
     Dosage: UNK
     Route: 065
  11. LURASIDONE [Suspect]
     Active Substance: LURASIDONE
     Indication: Bipolar II disorder
     Dosage: UNK
     Route: 065

REACTIONS (3)
  - Suicidal ideation [Unknown]
  - Product use in unapproved indication [Unknown]
  - Drug resistance [Unknown]

NARRATIVE: CASE EVENT DATE: 20230523
